FAERS Safety Report 18253317 (Version 1)
Quarter: 2020Q3

REPORT INFORMATION
  Report Type: Report from Study
  Country: US (occurrence: US)
  Receive Date: 20200910
  Receipt Date: 20200910
  Transmission Date: 20201103
  Serious: Yes (Other)
  Sender: FDA-Public Use
  Company Number: US-CHIESI USA, INC.-US-2020CHI000587

PATIENT

DRUGS (7)
  1. CLOPIDOGREL [Suspect]
     Active Substance: CLOPIDOGREL BISULFATE
     Indication: ANTIPLATELET THERAPY
     Dosage: 75 MG, UNK
     Route: 065
     Dates: start: 20190607
  2. FENTANYL. [Concomitant]
     Active Substance: FENTANYL
     Indication: PRODUCT USED FOR UNKNOWN INDICATION
     Dosage: UNK
     Route: 065
     Dates: start: 201906
  3. KENGREAL [Suspect]
     Active Substance: CANGRELOR
     Dosage: 13 ?G/KG, SINGLE
     Route: 040
     Dates: start: 20190618, end: 20190618
  4. ASPIRIN CUPAL                      /00002701/ [Concomitant]
     Indication: PRODUCT USED FOR UNKNOWN INDICATION
     Dosage: 100 MG, UNK
     Route: 065
     Dates: start: 201906
  5. KENGREAL [Suspect]
     Active Substance: CANGRELOR
     Dosage: 4 UNK
     Route: 042
     Dates: start: 20190617, end: 20190617
  6. KENGREAL [Suspect]
     Active Substance: CANGRELOR
     Indication: PERCUTANEOUS CORONARY INTERVENTION
     Dosage: 13 ?G/KG, SINGLE
     Route: 040
     Dates: start: 20190617, end: 20190617
  7. KENGREAL [Suspect]
     Active Substance: CANGRELOR
     Dosage: 4 UNK
     Route: 042
     Dates: start: 20190618, end: 20190618

REACTIONS (4)
  - Labelled drug-drug interaction medication error [Unknown]
  - Intentional product use issue [Unknown]
  - Cerebrovascular accident [Unknown]
  - Inappropriate schedule of product administration [Unknown]

NARRATIVE: CASE EVENT DATE: 20190617
